FAERS Safety Report 21875071 (Version 1)
Quarter: 2023Q1

REPORT INFORMATION
  Report Type: Report from Study
  Country: DE (occurrence: DE)
  Receive Date: 20230117
  Receipt Date: 20230117
  Transmission Date: 20230417
  Serious: Yes (Other)
  Sender: FDA-Public Use
  Company Number: DE-CELLTRION INC.-2023DE000422

PATIENT

DRUGS (2)
  1. TRASTUZUMAB [Suspect]
     Active Substance: TRASTUZUMAB
     Indication: Breast cancer
     Dosage: 488 MG, EVERY 0.33 WEEK (DATE OF LAST APPLICATION PRIOR EVENT: 27/SEP/2022, LAST DOSE PRIOR EVENT: 3
     Route: 042
     Dates: start: 20210406, end: 20210406
  2. PERTUZUMAB [Suspect]
     Active Substance: PERTUZUMAB
     Indication: Breast cancer
     Dosage: 840MG, EVERY 0.33 WEEK (DATE OF LAST APPLICATION PRIOR EVENT: 27/SEP/2022, LAST DOSE PRIOR EVENT: 42
     Dates: start: 20210406, end: 20210406

REACTIONS (2)
  - Neuropathy peripheral [Not Recovered/Not Resolved]
  - Off label use [Unknown]

NARRATIVE: CASE EVENT DATE: 20221010
